FAERS Safety Report 7008031-2 (Version None)
Quarter: 2010Q3

REPORT INFORMATION
  Report Type: 
  Country: None (occurrence: None)
  Receive Date: 20100922
  Receipt Date: 20100915
  Transmission Date: 20110219
  Serious: Yes (Hospitalization)
  Sender: FDA-Public Use
  Company Number: PHHO2009CA16335

PATIENT
  Sex: Female
  Weight: 55 kg

DRUGS (2)
  1. AFINITOR [Suspect]
     Indication: METASTATIC RENAL CELL CARCINOMA
     Dosage: 10 MG, QD
     Route: 048
     Dates: start: 20091223, end: 20091229
  2. CONTRAST MEDIA [Suspect]

REACTIONS (12)
  - BLOOD POTASSIUM DECREASED [None]
  - DEHYDRATION [None]
  - DIZZINESS [None]
  - HEADACHE [None]
  - HYPERSENSITIVITY [None]
  - HYPOPHAGIA [None]
  - MELAENA [None]
  - MUCOSAL INFLAMMATION [None]
  - OEDEMA PERIPHERAL [None]
  - OESOPHAGITIS [None]
  - ORAL PAIN [None]
  - RENAL FAILURE [None]
